FAERS Safety Report 4756801-3 (Version None)
Quarter: 2005Q3

REPORT INFORMATION
  Report Type: 
  Country: None (occurrence: None)
  Receive Date: 20050826
  Receipt Date: 20000424
  Transmission Date: 20060218
  Serious: Yes (Other)
  Sender: FDA-Public Use
  Company Number: KII-2000-0014193

PATIENT
  Age: 48 Year
  Sex: Male
  Weight: 79.4 kg

DRUGS (3)
  1. OXYCONTIN [Suspect]
     Indication: PAIN
     Dosage: 10 MG, SEE TEXT, ORAL
     Route: 048
  2. BACLOFEN [Concomitant]
  3. SERZONE [Concomitant]

REACTIONS (1)
  - DRUG DEPENDENCE [None]
